FAERS Safety Report 17727651 (Version 1)
Quarter: 2020Q2

REPORT INFORMATION
  Report Type: Spontaneous
  Country: US (occurrence: US)
  Receive Date: 20200430
  Receipt Date: 20200430
  Transmission Date: 20200714
  Serious: No
  Sender: FDA-Public Use
  Company Number: US-JNJFOC-20200436070

PATIENT
  Sex: Female
  Weight: 79.9 kg

DRUGS (2)
  1. INVOKANA [Suspect]
     Active Substance: CANAGLIFLOZIN
     Indication: DIABETES MELLITUS
     Route: 048
  2. OZEMPIC [Concomitant]
     Active Substance: SEMAGLUTIDE
     Dosage: INCREASED DOSE OF 1 MG SHOT ONCE WEEKLY.

REACTIONS (2)
  - Thirst [Unknown]
  - Alopecia [Unknown]
